FAERS Safety Report 5258187-7 (Version None)
Quarter: 2007Q1

REPORT INFORMATION
  Report Type: 
  Country: None (occurrence: None)
  Receive Date: 20070307
  Receipt Date: 20070226
  Transmission Date: 20070707
  Serious: Yes (Life-Threatening, Other)
  Sender: FDA-Public Use
  Company Number: FR-ABBOTT-07P-056-0359204-00

PATIENT
  Sex: Female
  Weight: 58 kg

DRUGS (11)
  1. KALETRA [Suspect]
     Indication: HIV INFECTION
     Route: 048
     Dates: start: 20070106, end: 20070125
  2. KALETRA [Suspect]
  3. DEPAKENE [Suspect]
     Indication: DRUG USE FOR UNKNOWN INDICATION
     Route: 048
     Dates: start: 20070124, end: 20070125
  4. DEPAKENE [Suspect]
  5. LAMIVUDINE + ZIDOVUDINE [Suspect]
     Indication: HIV INFECTION
     Route: 048
     Dates: start: 20070106, end: 20070125
  6. THIOPENTAL SODIUM [Interacting]
     Indication: ANAESTHESIA
     Dates: start: 20070129
  7. SUXAMETHONIUM CHLORIDE [Suspect]
     Indication: ANAESTHESIA
     Dates: start: 20070129
  8. ACYCLOVIR [Concomitant]
     Indication: DRUG USE FOR UNKNOWN INDICATION
     Route: 048
  9. BACTRIM [Concomitant]
     Indication: DRUG USE FOR UNKNOWN INDICATION
     Dates: end: 20070125
  10. METHADONE HCL [Concomitant]
     Indication: DRUG ABUSER
     Route: 048
  11. CEFOTAXIME SODIUM [Concomitant]
     Indication: PNEUMONIA PNEUMOCOCCAL
     Route: 042
     Dates: start: 20070101, end: 20070101

REACTIONS (18)
  - ANAEMIA [None]
  - ANGIOPATHY [None]
  - BLOOD CREATINE PHOSPHOKINASE INCREASED [None]
  - BLOOD LACTATE DEHYDROGENASE INCREASED [None]
  - CONFUSIONAL STATE [None]
  - CONVULSION [None]
  - DEPRESSED LEVEL OF CONSCIOUSNESS [None]
  - HYPERSENSITIVITY [None]
  - HYPOPHOSPHATAEMIA [None]
  - HYPOXIC ENCEPHALOPATHY [None]
  - LACTIC ACIDOSIS [None]
  - LEUKOCYTOSIS [None]
  - PANCYTOPENIA [None]
  - PYREXIA [None]
  - RASH [None]
  - RENAL TUBULAR DISORDER [None]
  - RESPIRATORY DISTRESS [None]
  - URINE ELECTROLYTES ABNORMAL [None]
